FAERS Safety Report 13694751 (Version 1)
Quarter: 2017Q2

REPORT INFORMATION
  Report Type: Spontaneous
  Country: US (occurrence: US)
  Receive Date: 20170627
  Receipt Date: 20170627
  Transmission Date: 20170830
  Serious: Yes (Hospitalization)
  Sender: FDA-Public Use
  Company Number: US-SA-2017SA111273

PATIENT
  Age: 73 Year
  Sex: Female

DRUGS (4)
  1. NOVOLOG [Concomitant]
     Active Substance: INSULIN ASPART
     Dosage: DOSE:3 UNIT(S)
     Route: 065
  2. SOLOSTAR [Concomitant]
     Active Substance: DEVICE
  3. TOUJEO [Suspect]
     Active Substance: INSULIN GLARGINE
     Dosage: DOSE:65 UNIT(S)
     Route: 051
     Dates: end: 201706
  4. TOUJEO [Suspect]
     Active Substance: INSULIN GLARGINE
     Dosage: FREQUENCY: EVERY MORNING. DOSE:20 UNIT(S)
     Route: 051
     Dates: start: 201706

REACTIONS (2)
  - Hypotension [Unknown]
  - Heart rate decreased [Unknown]

NARRATIVE: CASE EVENT DATE: 201706
